FAERS Safety Report 17703497 (Version 1)
Quarter: 2020Q2

REPORT INFORMATION
  Report Type: Spontaneous
  Country: IT (occurrence: IT)
  Receive Date: 20200424
  Receipt Date: 20200424
  Transmission Date: 20200714
  Serious: Yes (Other)
  Sender: FDA-Public Use
  Company Number: IT-HIKMA PHARMACEUTICALS USA INC.-IT-H14001-19-45738

PATIENT
  Age: 63 Year
  Sex: Male
  Weight: 74 kg

DRUGS (1)
  1. DOXORUBICIN HYDROCHLORIDE. [Suspect]
     Active Substance: DOXORUBICIN HYDROCHLORIDE
     Indication: SMALL CELL LUNG CANCER
     Route: 042

REACTIONS (4)
  - Infusion site erythema [Recovering/Resolving]
  - Infusion site pain [Recovering/Resolving]
  - Infusion site oedema [Recovering/Resolving]
  - Extravasation [Recovering/Resolving]

NARRATIVE: CASE EVENT DATE: 20190412
